FAERS Safety Report 14895515 (Version 1)
Quarter: 2018Q2

REPORT INFORMATION
  Report Type: Spontaneous
  Country: US (occurrence: US)
  Receive Date: 20180515
  Receipt Date: 20180515
  Transmission Date: 20180711
  Serious: No
  Sender: FDA-Public Use
  Company Number: US-BAYER-2018-084797

PATIENT
  Sex: Female

DRUGS (3)
  1. ALEVE PM [Suspect]
     Active Substance: DIPHENHYDRAMINE HYDROCHLORIDE\NAPROXEN SODIUM
     Dosage: 2 DF, UNK
     Route: 048
     Dates: start: 20180501
  2. ALEVE [Suspect]
     Active Substance: NAPROXEN SODIUM
     Indication: SWELLING
     Dosage: 1 DF, BID
     Route: 048
     Dates: start: 20180425
  3. ALEVE [Suspect]
     Active Substance: NAPROXEN SODIUM
     Dosage: 1 DF, BID
     Route: 048

REACTIONS (4)
  - Product use issue [Unknown]
  - Product prescribing issue [Unknown]
  - Off label use [Unknown]
  - Product use in unapproved indication [Unknown]

NARRATIVE: CASE EVENT DATE: 20180425
